FAERS Safety Report 15390696 (Version 3)
Quarter: 2019Q2

REPORT INFORMATION
  Report Type: Spontaneous
  Country: US (occurrence: US)
  Receive Date: 20180917
  Receipt Date: 20190501
  Transmission Date: 20190711
  Serious: No
  Sender: FDA-Public Use
  Company Number: US-SA-2018SA257894

PATIENT
  Age: 72 Year
  Sex: Female

DRUGS (1)
  1. DUPIXENT [Suspect]
     Active Substance: DUPILUMAB
     Indication: DERMATITIS ATOPIC
     Dosage: 300 MG, QOW
     Route: 058
     Dates: start: 201710

REACTIONS (6)
  - Dermatitis atopic [Unknown]
  - Drug ineffective [Unknown]
  - Pruritus [Unknown]
  - Mycotic allergy [Unknown]
  - Product dose omission [Unknown]
  - Rash papular [Unknown]
